FAERS Safety Report 10441805 (Version 1)
Quarter: 2014Q3

REPORT INFORMATION
  Report Type: Other
  Country: FR (occurrence: FR)
  Receive Date: 20140909
  Receipt Date: 20140909
  Transmission Date: 20150326
  Serious: Yes (Other)
  Sender: FDA-Public Use
  Company Number: FR-MYLAN-2014M1002824

PATIENT

DRUGS (6)
  1. FLUOROURACIL PFIZER [Suspect]
     Active Substance: FLUOROURACIL
     Indication: COLON NEOPLASM
     Dosage: 4450 MG, UNK
     Route: 042
     Dates: start: 20110202, end: 20110713
  2. ELOXATIN [Suspect]
     Active Substance: OXALIPLATIN
     Dosage: 135 MG, UNK
     Dates: start: 20110427, end: 20110713
  3. ELOXATIN [Suspect]
     Active Substance: OXALIPLATIN
     Indication: COLON NEOPLASM
     Dosage: 140 MG, UNK
     Route: 042
     Dates: start: 20110202, end: 20110413
  4. CALCIUM FOLINATE [Suspect]
     Active Substance: LEUCOVORIN CALCIUM
     Indication: COLON NEOPLASM
     Dosage: 630 MG, UNK
     Route: 042
     Dates: start: 20110202, end: 20110713
  5. ONDANS?TRON MYLAN [Suspect]
     Active Substance: ONDANSETRON
     Indication: PROPHYLAXIS OF NAUSEA AND VOMITING
     Dosage: 1 DF, QD
     Route: 042
     Dates: start: 20110202, end: 20110713
  6. SOLU-MEDROL [Suspect]
     Active Substance: METHYLPREDNISOLONE SODIUM SUCCINATE
     Indication: PROPHYLAXIS OF NAUSEA AND VOMITING
     Dosage: 40 MG, UNK
     Route: 042
     Dates: end: 20110713

REACTIONS (4)
  - Splenomegaly [Recovered/Resolved]
  - Hepatic enzyme increased [Not Recovered/Not Resolved]
  - Portal hypertension [Recovered/Resolved]
  - Thrombocytopenia [Recovered/Resolved]

NARRATIVE: CASE EVENT DATE: 20110209
